FAERS Safety Report 14365187 (Version 10)
Quarter: 2019Q4

REPORT INFORMATION
  Report Type: Report from Study
  Country: DE (occurrence: DE)
  Receive Date: 20180108
  Receipt Date: 20191209
  Transmission Date: 20200122
  Serious: Yes (Other)
  Sender: FDA-Public Use
  Company Number: DE-GILEAD-2017-0312411

PATIENT
  Age: 30 Year
  Sex: Male
  Weight: 76 kg

DRUGS (29)
  1. TELAPREVIR [Suspect]
     Active Substance: TELAPREVIR
     Dosage: 2250 MG, QD
     Route: 048
     Dates: start: 20120816
  2. BETAGALEN [Concomitant]
     Indication: PRODUCT USED FOR UNKNOWN INDICATION
     Dosage: UNK
     Route: 065
     Dates: start: 20120705
  3. ACC AKUT [Concomitant]
     Active Substance: ACETYLCYSTEINE
     Indication: PRODUCT USED FOR UNKNOWN INDICATION
     Dosage: 600 MG, UNK
     Route: 065
     Dates: start: 20130314
  4. NORVIR [Suspect]
     Active Substance: RITONAVIR
     Indication: HIV INFECTION
     Dosage: 100 UNK
     Route: 048
     Dates: start: 20160720
  5. SUBUTEX [Concomitant]
     Active Substance: BUPRENORPHINE HYDROCHLORIDE
     Indication: PRODUCT USED FOR UNKNOWN INDICATION
  6. METAMIZOL HEXAL [Concomitant]
     Active Substance: METAMIZOLE SODIUM
     Indication: PRODUCT USED FOR UNKNOWN INDICATION
     Dosage: UNK
     Route: 065
  7. RIBAVIRIN. [Suspect]
     Active Substance: RIBAVIRIN
     Indication: CHRONIC HEPATITIS C
     Dosage: 1000 MG, QD
     Route: 048
     Dates: start: 20120524, end: 20120802
  8. CITALOPRAM [Concomitant]
     Active Substance: CITALOPRAM HYDROBROMIDE
     Indication: PRODUCT USED FOR UNKNOWN INDICATION
     Dosage: 20 MG, UNK
     Route: 065
     Dates: start: 20120621, end: 20130601
  9. ACC AKUT [Concomitant]
     Active Substance: ACETYLCYSTEINE
     Indication: PRODUCT USED FOR UNKNOWN INDICATION
  10. EMTRICITABINE/TENOFOVIR DISOPROXIL FUMARATE [Suspect]
     Active Substance: EMTRICITABINE\TENOFOVIR DISOPROXIL FUMARATE
     Indication: HIV INFECTION
     Dosage: 200 MG, QD
     Route: 048
     Dates: start: 20100101, end: 20160720
  11. PEGINTERFERON ALFA-2A. [Suspect]
     Active Substance: PEGINTERFERON ALFA-2A
     Indication: CHRONIC HEPATITIS C
     Dosage: 180 UG, QD
     Route: 058
     Dates: start: 20120524, end: 20130425
  12. NORVIR [Suspect]
     Active Substance: RITONAVIR
     Indication: HIV INFECTION
     Dosage: 100 MG, QD
     Route: 048
     Dates: start: 20100101, end: 20160720
  13. CITALOPRAM [Concomitant]
     Active Substance: CITALOPRAM HYDROBROMIDE
     Dosage: 40 MG, UNK
     Route: 065
  14. METAMIZOL                          /06276701/ [Concomitant]
     Active Substance: METAMIZOLE
     Indication: PRODUCT USED FOR UNKNOWN INDICATION
     Dosage: UNK
     Route: 065
     Dates: start: 20121221
  15. RIBAVIRIN. [Suspect]
     Active Substance: RIBAVIRIN
     Indication: PRODUCT USED FOR UNKNOWN INDICATION
  16. PEGINTERFERON ALFA-2A. [Suspect]
     Active Substance: PEGINTERFERON ALFA-2A
     Dosage: 180 G, QW
     Route: 058
     Dates: start: 20120524, end: 20130425
  17. TELAPREVIR [Suspect]
     Active Substance: TELAPREVIR
     Dosage: 2250 MG, UNK
     Route: 065
  18. ATAZANAVIR SULFATE. [Suspect]
     Active Substance: ATAZANAVIR SULFATE
     Indication: HIV INFECTION
     Dosage: 300 MG, QD
     Route: 048
     Dates: start: 20100101, end: 20160720
  19. ATAZANAVIR SULFATE. [Suspect]
     Active Substance: ATAZANAVIR SULFATE
     Indication: HEPATITIS C
     Dosage: 300 UNK
     Route: 048
     Dates: start: 20160720
  20. AZITHROBETA [Concomitant]
     Active Substance: AZITHROMYCIN
     Indication: PRODUCT USED FOR UNKNOWN INDICATION
     Dosage: 500 MG, QD
     Route: 065
     Dates: start: 20130605
  21. EMTRICITABINE/TENOFOVIR DISOPROXIL FUMARATE [Suspect]
     Active Substance: EMTRICITABINE\TENOFOVIR DISOPROXIL FUMARATE
     Dosage: 200 UNK
     Route: 048
     Dates: start: 20160720
  22. RIBAVIRIN. [Suspect]
     Active Substance: RIBAVIRIN
     Indication: HEPATITIS C
     Dosage: 800 MG, QD
     Route: 048
     Dates: start: 20120803, end: 20130425
  23. EMTRICITABINE/TENOFOVIR DISOPROXIL FUMARATE [Suspect]
     Active Substance: EMTRICITABINE\TENOFOVIR DISOPROXIL FUMARATE
     Indication: HIV INFECTION
     Dosage: 200 MG/245 MG, QD
     Route: 048
     Dates: start: 20100101, end: 20160720
  24. TELAPREVIR [Suspect]
     Active Substance: TELAPREVIR
     Indication: CHRONIC HEPATITIS C
     Dosage: 2250 MG, QD
     Route: 048
     Dates: start: 20120524, end: 20120816
  25. PEGINTERFERON ALFA-2A. [Suspect]
     Active Substance: PEGINTERFERON ALFA-2A
     Dosage: 180 UG, QD
     Route: 058
     Dates: start: 20130425
  26. PEGASYS [Suspect]
     Active Substance: PEGINTERFERON ALFA-2A
     Indication: CHRONIC HEPATITIS C
     Dosage: 180 UG, QD
     Route: 058
     Dates: start: 20120524, end: 20130425
  27. AZITHROBETA [Concomitant]
     Active Substance: AZITHROMYCIN
     Indication: PRODUCT USED FOR UNKNOWN INDICATION
     Dosage: 500 MG, QD
     Route: 065
     Dates: start: 20130603, end: 20130605
  28. SUBUTEX [Concomitant]
     Active Substance: BUPRENORPHINE HYDROCHLORIDE
     Indication: PRODUCT USED FOR UNKNOWN INDICATION
     Dosage: 4 MG, UNK
     Route: 065
  29. ACC ACUTE [Concomitant]
     Active Substance: ACETYLCYSTEINE
     Dosage: 600 MG, UNK
     Route: 065

REACTIONS (26)
  - Impaired healing [Recovered/Resolved]
  - Skin irritation [Not Recovered/Not Resolved]
  - Fatigue [Recovered/Resolved]
  - Alanine aminotransferase increased [Not Recovered/Not Resolved]
  - Pruritus [Not Recovered/Not Resolved]
  - Sinusitis [Recovered/Resolved]
  - Pruritus [Not Recovered/Not Resolved]
  - Taste disorder [Not Recovered/Not Resolved]
  - Oral herpes [Recovered/Resolved]
  - Dizziness [Recovered/Resolved]
  - Laboratory test abnormal [Unknown]
  - Pruritus [Recovering/Resolving]
  - Withdrawal syndrome [Not Recovered/Not Resolved]
  - Pruritus [Recovering/Resolving]
  - Anaemia [Not Recovered/Not Resolved]
  - Drug dependence [Not Recovered/Not Resolved]
  - Influenza like illness [Recovered/Resolved]
  - Restlessness [Recovered/Resolved]
  - Depressed mood [Not Recovered/Not Resolved]
  - Depressed mood [Not Recovered/Not Resolved]
  - Incorrect dose administered [Recovered/Resolved]
  - Headache [Recovered/Resolved]
  - Dry skin [Not Recovered/Not Resolved]
  - Nausea [Recovered/Resolved]
  - Vertigo [Recovered/Resolved]
  - Dry skin [Not Recovered/Not Resolved]

NARRATIVE: CASE EVENT DATE: 20120524
